FAERS Safety Report 15883757 (Version 1)
Quarter: 2019Q1

REPORT INFORMATION
  Report Type: Spontaneous
  Country: US (occurrence: US)
  Receive Date: 20190107
  Receipt Date: 20190107
  Transmission Date: 20190417
  Serious: Yes (Hospitalization)
  Sender: FDA-Public Use
  Company Number: None

PATIENT
  Age: 70 Year
  Sex: Male
  Weight: 92.7 kg

DRUGS (1)
  1. ERTAPENEM. [Suspect]
     Active Substance: ERTAPENEM SODIUM
     Indication: BACTERAEMIA
     Route: 042
     Dates: start: 20181011, end: 20181021

REACTIONS (3)
  - Seizure [None]
  - Seizure like phenomena [None]
  - Status epilepticus [None]

NARRATIVE: CASE EVENT DATE: 20181022
